FAERS Safety Report 9972924 (Version 3)
Quarter: 2014Q3

REPORT INFORMATION
  Report Type: Spontaneous
  Country: GB (occurrence: GB)
  Receive Date: 20140306
  Receipt Date: 20140915
  Transmission Date: 20150326
  Serious: Yes (Other)
  Sender: FDA-Public Use
  Company Number: GB-ACTAVISPR-2014-03497

PATIENT
  Age: 74 Year
  Sex: Female

DRUGS (3)
  1. GABAPENTIN ACTAVIS [Suspect]
     Active Substance: GABAPENTIN
     Dosage: 300 MG, DAILY
     Route: 048
  2. GABAPENTIN ACTAVIS [Suspect]
     Active Substance: GABAPENTIN
     Indication: NEURALGIA
     Dosage: 300 MG, TID
     Route: 048
     Dates: start: 201302
  3. ETORICOXIB [Concomitant]
     Active Substance: ETORICOXIB
     Indication: PRODUCT USED FOR UNKNOWN INDICATION
     Dosage: UNK
     Route: 065

REACTIONS (9)
  - Incontinence [Unknown]
  - Flatulence [Unknown]
  - Pain in extremity [Unknown]
  - Memory impairment [Unknown]
  - Balance disorder [Unknown]
  - Headache [Unknown]
  - Musculoskeletal pain [Unknown]
  - Dyskinesia [Unknown]
  - Dizziness [Unknown]

NARRATIVE: CASE EVENT DATE: 201302
